FAERS Safety Report 7465361-8 (Version None)
Quarter: 2011Q2

REPORT INFORMATION
  Report Type: 
  Country: None (occurrence: None)
  Receive Date: 20110509
  Receipt Date: 20110502
  Transmission Date: 20111010
  Serious: Yes (Hospitalization)
  Sender: FDA-Public Use
  Company Number: BR-BRISTOL-MYERS SQUIBB COMPANY-15719677

PATIENT
  Age: 62 Year
  Sex: Female
  Weight: 80 kg

DRUGS (9)
  1. SOMALGIN CARDIO [Concomitant]
     Dosage: SINCE 3 YEARS AGO
  2. HUMALOG [Concomitant]
  3. ONGLYZA [Suspect]
     Indication: DIABETES MELLITUS
     Dosage: 1 TABLET OF 5 MG PER DAY
     Route: 048
     Dates: start: 20101201
  4. DIOVAN [Concomitant]
     Indication: HYPERTENSION
  5. SELOZOK [Concomitant]
     Indication: ARRHYTHMIA
     Dosage: SINCE 2 YEARS AGO
  6. LIPANOR [Concomitant]
     Indication: BLOOD CHOLESTEROL
  7. METFORMIN HCL [Suspect]
  8. ALLOPURINOL [Concomitant]
     Indication: BLOOD URIC ACID
  9. PRANDIN [Concomitant]
     Dosage: INTERRUPTED ON JAN-2011 DUE TO BACK ORDER

REACTIONS (4)
  - WEIGHT DECREASED [None]
  - DECREASED APPETITE [None]
  - LIMB OPERATION [None]
  - URTICARIA [None]
